FAERS Safety Report 9093804 (Version 1)
Quarter: 2013Q1

REPORT INFORMATION
  Report Type: Report from Study
  Country: CA (occurrence: CA)
  Receive Date: 20130219
  Receipt Date: 20130219
  Transmission Date: 20140127
  Serious: Yes (Other)
  Sender: FDA-Public Use
  Company Number: CA-JNJFOC-20130200942

PATIENT
  Age: 35 Year
  Sex: Male
  Weight: 145 kg

DRUGS (1)
  1. REMICADE [Suspect]
     Indication: PSORIASIS
     Route: 042
     Dates: start: 20110601

REACTIONS (2)
  - Wheezing [Recovered/Resolved]
  - Influenza [Unknown]
